FAERS Safety Report 9760121 (Version 3)
Quarter: 2014Q1

REPORT INFORMATION
  Report Type: Report from Study
  Country: US (occurrence: US)
  Receive Date: 20131216
  Receipt Date: 20140107
  Transmission Date: 20141002
  Serious: Yes (Hospitalization)
  Sender: FDA-Public Use
  Company Number: US-JNJFOC-20131207201

PATIENT
  Age: 16 Year
  Sex: Male
  Weight: 33.7 kg

DRUGS (5)
  1. REMICADE [Suspect]
     Indication: CROHN^S DISEASE
     Route: 042
     Dates: start: 20100618
  2. SOMATROPIN [Concomitant]
     Route: 065
  3. PERIACTIN [Concomitant]
     Route: 065
  4. HYDROCORTISONE 1% [Concomitant]
     Route: 065
  5. HISTRELIN ACETATE [Concomitant]
     Route: 065

REACTIONS (1)
  - Failure to thrive [Recovered/Resolved with Sequelae]
